FAERS Safety Report 9482314 (Version 3)
Quarter: 2013Q4

REPORT INFORMATION
  Report Type: Spontaneous
  Country: US (occurrence: US)
  Receive Date: 20130828
  Receipt Date: 20131114
  Transmission Date: 20140711
  Serious: Yes (Hospitalization)
  Sender: FDA-Public Use
  Company Number: US-ELI_LILLY_AND_COMPANY-US201308005928

PATIENT
  Age: 65 Year
  Sex: Female
  Weight: 93.42 kg

DRUGS (3)
  1. CYMBALTA [Suspect]
     Indication: DEPRESSION
     Dosage: 30 MG, QD
     Route: 048
     Dates: start: 20130410, end: 20130423
  2. CYMBALTA [Suspect]
     Indication: RHEUMATOID ARTHRITIS
     Dosage: 60 MG, QD
     Route: 048
     Dates: start: 20130424, end: 20130726
  3. CYMBALTA [Suspect]
     Indication: FIBROMYALGIA

REACTIONS (6)
  - Dyspnoea [Recovered/Resolved]
  - Presyncope [Recovered/Resolved]
  - Chest pain [Recovered/Resolved]
  - Fatigue [Recovered/Resolved]
  - Disturbance in attention [Recovered/Resolved]
  - Hypokalaemia [Recovered/Resolved]
